FAERS Safety Report 5109874-2 (Version None)
Quarter: 2006Q3

REPORT INFORMATION
  Report Type: 
  Country: None (occurrence: None)
  Receive Date: 20060919
  Receipt Date: 20060919
  Transmission Date: 20061208
  Serious: No
  Sender: FDA-Public Use
  Company Number: None

PATIENT
  Sex: Female

DRUGS (1)
  1. HUMIRA [Suspect]
     Indication: RHEUMATOID ARTHRITIS
     Dosage: 40MG  Q10DAYS  SQ
     Dates: start: 20050224, end: 20060918

REACTIONS (2)
  - INJECTION SITE BRUISING [None]
  - RED BLOOD CELL COUNT DECREASED [None]
